FAERS Safety Report 10526230 (Version 10)
Quarter: 2015Q4

REPORT INFORMATION
  Report Type: Spontaneous
  Country: US (occurrence: US)
  Receive Date: 20141017
  Receipt Date: 20151002
  Transmission Date: 20160304
  Serious: Yes (Hospitalization, Other)
  Sender: FDA-Public Use
  Company Number: US-ACTELION-A-NJ2014-106526

PATIENT
  Age: 74 Year
  Sex: Female
  Weight: 102.4 kg

DRUGS (24)
  1. HUMULIN NOS [Concomitant]
     Active Substance: INSULIN HUMAN
  2. POTASSIUM CHLORIDE. [Concomitant]
     Active Substance: POTASSIUM CHLORIDE
  3. RIOCIGUAT [Suspect]
     Active Substance: RIOCIGUAT
     Indication: PRODUCT USED FOR UNKNOWN INDICATION
     Dosage: 1.5 MG, TID
     Route: 048
     Dates: start: 20140729
  4. RIOCIGUAT [Suspect]
     Active Substance: RIOCIGUAT
     Dosage: 2.5 UNK, UNK
     Route: 048
     Dates: start: 20141023
  5. ASPIRIN. [Concomitant]
     Active Substance: ASPIRIN
  6. CETIRIZINE [Concomitant]
     Active Substance: CETIRIZINE HYDROCHLORIDE
  7. DOCUSATE [Concomitant]
     Active Substance: DOCUSATE
  8. LINZESS [Concomitant]
     Active Substance: LINACLOTIDE
  9. ATORVASTATIN [Concomitant]
     Active Substance: ATORVASTATIN
  10. CLEAR EYES [Concomitant]
  11. TUMS [Concomitant]
     Active Substance: CALCIUM CARBONATE
  12. BACLOFEN. [Concomitant]
     Active Substance: BACLOFEN
  13. SINGULAIR [Concomitant]
     Active Substance: MONTELUKAST SODIUM
  14. TORSEMIDE. [Concomitant]
     Active Substance: TORSEMIDE
  15. OPSUMIT [Suspect]
     Active Substance: MACITENTAN
     Indication: PULMONARY ARTERIAL HYPERTENSION
     Dosage: 10 MG, QD
     Route: 048
     Dates: start: 20140714
  16. CENTRUM [Concomitant]
     Active Substance: VITAMINS
  17. FLONASE [Concomitant]
     Active Substance: FLUTICASONE PROPIONATE
     Dosage: 50 MCG,  2 SPRAYS QD
     Dates: start: 20141023
  18. OXYGEN. [Concomitant]
     Active Substance: OXYGEN
     Dosage: 2-2.5 L/MIN, UNK
  19. CALCITRIOL. [Concomitant]
     Active Substance: CALCITRIOL
  20. MUCINEX [Concomitant]
     Active Substance: GUAIFENESIN
  21. SYNTHROID [Concomitant]
     Active Substance: LEVOTHYROXINE SODIUM
  22. WARFARIN [Concomitant]
     Active Substance: WARFARIN
  23. CARVEDILOL. [Concomitant]
     Active Substance: CARVEDILOL
  24. HUMALOG [Concomitant]
     Active Substance: INSULIN LISPRO

REACTIONS (25)
  - Ascites [Unknown]
  - Chronic kidney disease [Recovered/Resolved]
  - Epistaxis [Unknown]
  - Chest pain [Unknown]
  - Dyspnoea [Unknown]
  - Pleural effusion [Recovering/Resolving]
  - Weight increased [Unknown]
  - Asthenia [Unknown]
  - Swelling face [Unknown]
  - Cough [Unknown]
  - Productive cough [Unknown]
  - Dyspnoea exertional [Unknown]
  - Decreased activity [Unknown]
  - Renal impairment [Unknown]
  - Pericardial effusion [Recovering/Resolving]
  - Dialysis [Unknown]
  - Nausea [Unknown]
  - Decreased appetite [Unknown]
  - Fluid retention [Unknown]
  - Pain in extremity [Recovered/Resolved]
  - Peripheral swelling [Recovering/Resolving]
  - Pulmonary function test decreased [Unknown]
  - Concomitant disease progression [Recovered/Resolved]
  - Heart rate irregular [Unknown]
  - Pneumonia [Unknown]

NARRATIVE: CASE EVENT DATE: 20150202
